FAERS Safety Report 5204025-8 (Version None)
Quarter: 2007Q1

REPORT INFORMATION
  Report Type: 
  Country: None (occurrence: None)
  Receive Date: 20070110
  Receipt Date: 20060223
  Transmission Date: 20070707
  Serious: Yes (Other)
  Sender: FDA-Public Use
  Company Number: US-BRISTOL-MYERS SQUIBB COMPANY-13139878

PATIENT
  Age: 6 Year
  Sex: Male

DRUGS (6)
  1. ABILIFY [Suspect]
     Indication: AGGRESSION
     Route: 048
     Dates: start: 20051008, end: 20051009
  2. ABILIFY [Suspect]
     Indication: BIPOLAR DISORDER
     Route: 048
     Dates: start: 20051008, end: 20051009
  3. ABILIFY [Suspect]
     Indication: POST-TRAUMATIC STRESS DISORDER
     Route: 048
     Dates: start: 20051008, end: 20051009
  4. TENEX [Concomitant]
     Dosage: 8 A.M., NOON, 4 P.M.
  5. CLONIDINE [Concomitant]
  6. CLARITIN [Concomitant]
     Indication: MULTIPLE ALLERGIES

REACTIONS (1)
  - GRAND MAL CONVULSION [None]
